FAERS Safety Report 13329298 (Version 1)
Quarter: 2017Q1

REPORT INFORMATION
  Report Type: Spontaneous
  Country: FR (occurrence: FR)
  Receive Date: 20170313
  Receipt Date: 20170313
  Transmission Date: 20170428
  Serious: Yes (Other)
  Sender: FDA-Public Use
  Company Number: FR-JUBILANT CADISTA PHARMACEUTICALS-2017JUB00075

PATIENT
  Age: 67 Year
  Sex: Male

DRUGS (3)
  1. CARBAMAZEPINE. [Suspect]
     Active Substance: CARBAMAZEPINE
     Indication: ISCHAEMIC NEUROPATHY
     Dosage: REINTRODUCED
     Route: 065
     Dates: start: 2015, end: 2015
  2. CARBAMAZEPINE. [Suspect]
     Active Substance: CARBAMAZEPINE
     Indication: METASTATIC NEOPLASM
     Dosage: 200 MG, 2X/DAY
     Route: 065
     Dates: start: 201504, end: 20150421
  3. IBRUTINIB [Suspect]
     Active Substance: IBRUTINIB
     Indication: MANTLE CELL LYMPHOMA
     Dosage: 560 MG, 1X/DAY
     Route: 065
     Dates: start: 20150421

REACTIONS (2)
  - Drug interaction [Unknown]
  - Mantle cell lymphoma [Unknown]
